FAERS Safety Report 12652419 (Version 1)
Quarter: 2016Q3

REPORT INFORMATION
  Report Type: Spontaneous
  Country: US (occurrence: US)
  Receive Date: 20160815
  Receipt Date: 20160815
  Transmission Date: 20161109
  Serious: No
  Sender: FDA-Public Use
  Company Number: US-PFIZER INC-2016358867

PATIENT
  Age: 73 Year
  Sex: Female
  Weight: 102 kg

DRUGS (5)
  1. ATENOLOL. [Concomitant]
     Active Substance: ATENOLOL
     Indication: HYPERTENSION
     Dosage: 50MG ONE TABLET BY MOUTH DAILY
     Route: 048
  2. LEVOTHYROXIN [Concomitant]
     Active Substance: LEVOTHYROXINE
     Indication: BASEDOW^S DISEASE
     Dosage: 150MG ONE TABLET BY MOUTH DAILY
     Route: 048
  3. ARIMIDEX [Suspect]
     Active Substance: ANASTROZOLE
  4. AROMASIN [Suspect]
     Active Substance: EXEMESTANE
     Indication: BREAST CANCER
     Dosage: ONE TABLET, 1X/DAY
     Route: 048
     Dates: start: 2016, end: 2016
  5. LOSARTAN. [Concomitant]
     Active Substance: LOSARTAN
     Indication: HYPERTENSION
     Dosage: 100MG ONE TABLET BY MOUTH DAILY
     Route: 048

REACTIONS (1)
  - Arthralgia [Recovering/Resolving]
